FAERS Safety Report 12569314 (Version 1)
Quarter: 2016Q3

REPORT INFORMATION
  Report Type: Spontaneous
  Country: US (occurrence: None)
  Receive Date: 20160718
  Receipt Date: 20160718
  Transmission Date: 20161109
  Serious: No
  Sender: FDA-Public Use
  Company Number: None

PATIENT
  Age: 54 Year
  Sex: Female

DRUGS (7)
  1. ROBAXIN [Concomitant]
     Active Substance: METHOCARBAMOL
  2. NEURONTIN [Concomitant]
     Active Substance: GABAPENTIN
  3. GABAPENTIN. [Concomitant]
     Active Substance: GABAPENTIN
  4. METHOCARBAM [Concomitant]
  5. TRAMADOL HCL [Concomitant]
     Active Substance: TRAMADOL HYDROCHLORIDE
  6. DULOXETINE. [Concomitant]
     Active Substance: DULOXETINE
  7. GLATOPA [Suspect]
     Active Substance: GLATIRAMER ACETATE
     Indication: MULTIPLE SCLEROSIS
     Route: 058
     Dates: start: 20160425

REACTIONS (7)
  - Injection site reaction [None]
  - Paraesthesia [None]
  - Anxiety [None]
  - Dizziness [None]
  - Fatigue [None]
  - Memory impairment [None]
  - Drug effect decreased [None]

NARRATIVE: CASE EVENT DATE: 20160504
